FAERS Safety Report 7674518-2 (Version None)
Quarter: 2011Q3

REPORT INFORMATION
  Report Type: 
  Country: None (occurrence: None)
  Receive Date: 20110810
  Receipt Date: 20110728
  Transmission Date: 20111222
  Serious: Yes (Hospitalization, Other)
  Sender: FDA-Public Use
  Company Number: PHHY2011FR68411

PATIENT
  Age: 23 Year
  Sex: Female

DRUGS (2)
  1. GLEEVEC [Suspect]
     Indication: CHRONIC MYELOID LEUKAEMIA
     Dosage: 400 MG, DAILY
     Dates: start: 20101021, end: 20110113
  2. SPRYCEL [Suspect]
     Dosage: 100 MG, DAILY
     Dates: start: 20110124

REACTIONS (5)
  - CYTOGENETIC ABNORMALITY [None]
  - LEUKAEMIA RECURRENT [None]
  - ABORTION SPONTANEOUS [None]
  - TREATMENT FAILURE [None]
  - MATERNAL EXPOSURE DURING PREGNANCY [None]
